FAERS Safety Report 5400617-1 (Version None)
Quarter: 2007Q3

REPORT INFORMATION
  Report Type: 
  Country: None (occurrence: None)
  Receive Date: 20070730
  Receipt Date: 20070404
  Transmission Date: 20080115
  Serious: No
  Sender: FDA-Public Use
  Company Number: A0645964A

PATIENT
  Age: 25 Year
  Sex: Female

DRUGS (1)
  1. RANITIDINE HCL [Suspect]
     Dosage: 150MG SINGLE DOSE
     Route: 048

REACTIONS (5)
  - CHEST DISCOMFORT [None]
  - DISORIENTATION [None]
  - DYSPNOEA [None]
  - FREQUENT BOWEL MOVEMENTS [None]
  - HAEMATOCHEZIA [None]
